FAERS Safety Report 15999853 (Version 1)
Quarter: 2019Q1

REPORT INFORMATION
  Report Type: Spontaneous
  Country: US (occurrence: US)
  Receive Date: 20190225
  Receipt Date: 20190225
  Transmission Date: 20190418
  Serious: Yes (Disabling)
  Sender: FDA-Public Use
  Company Number: US-PFIZER INC-2019082271

PATIENT
  Age: 55 Year
  Sex: Female

DRUGS (1)
  1. LYRICA [Suspect]
     Active Substance: PREGABALIN
     Dosage: 300 MG, A QUANTITY OF 60 FOR 30 DAYS

REACTIONS (3)
  - Diabetes mellitus [Unknown]
  - Diabetic neuropathy [Unknown]
  - Chronic obstructive pulmonary disease [Unknown]
